FAERS Safety Report 17407677 (Version 1)
Quarter: 2020Q1

REPORT INFORMATION
  Report Type: Spontaneous
  Country: US (occurrence: US)
  Receive Date: 20200128
  Receipt Date: 20200128
  Transmission Date: 20200409
  Serious: Yes (Hospitalization)
  Sender: FDA-Public Use
  Company Number: None

PATIENT
  Age: 4 Year
  Sex: Female

DRUGS (7)
  1. ETOODOLAC [Concomitant]
  2. ENBREL [Suspect]
     Active Substance: ETANERCEPT
  3. METHOTREXATE. [Concomitant]
     Active Substance: METHOTREXATE
  4. FOLIC ACID. [Concomitant]
     Active Substance: FOLIC ACID
  5. LANSOPRAOLE [Concomitant]
  6. PREDNISONE. [Concomitant]
     Active Substance: PREDNISONE
  7. SULFASALAZINE. [Concomitant]
     Active Substance: SULFASALAZINE

REACTIONS (1)
  - Hospitalisation [None]

NARRATIVE: CASE EVENT DATE: 20190901
